FAERS Safety Report 22014494 (Version 2)
Quarter: 2023Q1

REPORT INFORMATION
  Report Type: Spontaneous
  Country: FR (occurrence: FR)
  Receive Date: 20230221
  Receipt Date: 20230301
  Transmission Date: 20230417
  Serious: Yes (Hospitalization, Other)
  Sender: FDA-Public Use
  Company Number: None

PATIENT
  Age: 63 Year
  Sex: Female

DRUGS (2)
  1. HEPARIN SODIUM [Suspect]
     Active Substance: HEPARIN SODIUM
     Indication: Coronary artery bypass
     Dosage: UNK
     Route: 042
     Dates: start: 20221220, end: 20221222
  2. LOVENOX [Suspect]
     Active Substance: ENOXAPARIN SODIUM
     Indication: Atrial fibrillation
     Dosage: 7000 IU, Q12H
     Route: 058
     Dates: start: 20221223, end: 20230103

REACTIONS (3)
  - Cardiac ventricular thrombosis [Recovering/Resolving]
  - Heparin-induced thrombocytopenia [Recovered/Resolved]
  - Aortic thrombosis [Recovering/Resolving]

NARRATIVE: CASE EVENT DATE: 20230103
